FAERS Safety Report 6857241-3 (Version None)
Quarter: 2010Q3

REPORT INFORMATION
  Report Type: 
  Country: None (occurrence: None)
  Receive Date: 20100719
  Receipt Date: 20100712
  Transmission Date: 20110219
  Serious: Yes (Hospitalization)
  Sender: FDA-Public Use
  Company Number: DE-JNJFOC-20100702554

PATIENT
  Age: 66 Year
  Sex: Male
  Weight: 64 kg

DRUGS (10)
  1. DURAGESIC-100 [Suspect]
     Indication: PRODUCT USED FOR UNKNOWN INDICATION
     Route: 062
     Dates: start: 20071010, end: 20071022
  2. DURAGESIC-100 [Suspect]
     Route: 062
     Dates: start: 20071010, end: 20071022
  3. DURAGESIC-100 [Suspect]
     Route: 062
     Dates: start: 20071010, end: 20071022
  4. SEVREDOL [Suspect]
     Indication: PRODUCT USED FOR UNKNOWN INDICATION
     Route: 065
     Dates: start: 20071010
  5. PANTOZOL [Concomitant]
     Route: 048
     Dates: end: 20071103
  6. MCP BETA [Concomitant]
     Route: 048
     Dates: end: 20071103
  7. NULYTELY [Concomitant]
     Route: 048
  8. NULYTELY [Concomitant]
     Route: 048
  9. NULYTELY [Concomitant]
     Route: 048
  10. NOVALGIN [Concomitant]
     Route: 048
     Dates: end: 20071103

REACTIONS (1)
  - FAECALOMA [None]
